FAERS Safety Report 17294488 (Version 1)
Quarter: 2020Q1

REPORT INFORMATION
  Report Type: Spontaneous
  Country: US (occurrence: US)
  Receive Date: 20200121
  Receipt Date: 20200121
  Transmission Date: 20200409
  Serious: No
  Sender: FDA-Public Use
  Company Number: US-MYLANLABS-2020M1000081

PATIENT
  Sex: Female

DRUGS (3)
  1. PINDOLOL TABLETS, USP [Suspect]
     Active Substance: PINDOLOL
     Indication: PALPITATIONS
  2. PINDOLOL TABLETS, USP [Suspect]
     Active Substance: PINDOLOL
     Indication: BLOOD PRESSURE MEASUREMENT
     Dosage: 1/2 TABLET, 3 TIMES A DAY
     Route: 048
     Dates: start: 20191128
  3. PINDOLOL TABLETS, USP [Suspect]
     Active Substance: PINDOLOL
     Indication: ARRHYTHMIA

REACTIONS (4)
  - Wrong technique in product usage process [Unknown]
  - Incorrect dose administered [Not Recovered/Not Resolved]
  - Product quality issue [Unknown]
  - Product use in unapproved indication [Not Recovered/Not Resolved]

NARRATIVE: CASE EVENT DATE: 20191128
